FAERS Safety Report 25969168 (Version 1)
Quarter: 2025Q4

REPORT INFORMATION
  Report Type: Spontaneous
  Country: EU (occurrence: EU)
  Receive Date: 20251028
  Receipt Date: 20251028
  Transmission Date: 20260118
  Serious: Yes (Other)
  Sender: ACCORD
  Company Number: EU-MLMSERVICE-20251010-PI672227-00123-1

PATIENT
  Age: 72 Year
  Sex: Male

DRUGS (4)
  1. FLUOROURACIL [Suspect]
     Active Substance: FLUOROURACIL
     Indication: Gastric cancer
     Dosage: FIRST CYCLE
  2. DOCETAXEL [Suspect]
     Active Substance: DOCETAXEL
     Indication: Gastric cancer
     Dosage: FIRST CYCLE
  3. OXALIPLATIN [Suspect]
     Active Substance: OXALIPLATIN
     Indication: Gastric cancer
     Dosage: FIRST CYCLE
  4. LEUCOVORIN [Suspect]
     Active Substance: LEUCOVORIN\LEUCOVORIN CALCIUM
     Indication: Gastric cancer
     Dosage: FIRST CYCLE

REACTIONS (3)
  - Anaemia [Unknown]
  - Deep vein thrombosis [Unknown]
  - Dysphagia [Unknown]
